FAERS Safety Report 7221694-1 (Version None)
Quarter: 2011Q1

REPORT INFORMATION
  Report Type: 
  Country: None (occurrence: None)
  Receive Date: 20110112
  Receipt Date: 20110104
  Transmission Date: 20110831
  Serious: Yes (Other)
  Sender: FDA-Public Use
  Company Number: NL-ROCHE-751703

PATIENT

DRUGS (3)
  1. CAPECITABINE [Suspect]
     Dosage: STARTED FROM DAY 8, TWICE DAILY FOR 14 DAYS IN A 3 WEEK CYCLE.
     Route: 065
  2. CAPECITABINE [Suspect]
     Indication: NEOPLASM MALIGNANT
     Dosage: SINGLE DOSE 7 DAYS PRIOR TO START OF TREATMENT.
     Route: 065
  3. EVEROLIMUS [Suspect]
     Indication: NEOPLASM MALIGNANT
     Route: 048

REACTIONS (9)
  - PALMAR-PLANTAR ERYTHRODYSAESTHESIA SYNDROME [None]
  - ALANINE AMINOTRANSFERASE INCREASED [None]
  - NAUSEA [None]
  - FATIGUE [None]
  - GAMMA-GLUTAMYLTRANSFERASE INCREASED [None]
  - BLOOD BILIRUBIN INCREASED [None]
  - THROMBOCYTOPENIA [None]
  - BLOOD ALKALINE PHOSPHATASE INCREASED [None]
  - HYPERTRIGLYCERIDAEMIA [None]
